FAERS Safety Report 7720264-6 (Version None)
Quarter: 2011Q3

REPORT INFORMATION
  Report Type: 
  Country: None (occurrence: None)
  Receive Date: 20110831
  Receipt Date: 20110829
  Transmission Date: 20111222
  Serious: Yes (Other)
  Sender: FDA-Public Use
  Company Number: DE-PFIZER INC-2011200478

PATIENT
  Age: 34 Year
  Sex: Female

DRUGS (2)
  1. SYNAREL [Suspect]
     Dosage: UNK
     Dates: end: 20110101
  2. CETROTIDE ^SERONO^ [Suspect]
     Dosage: UNK
     Dates: start: 20110101

REACTIONS (3)
  - HYPERSENSITIVITY [None]
  - DERMATITIS ALLERGIC [None]
  - ARTHROPATHY [None]
